FAERS Safety Report 8508124-4 (Version None)
Quarter: 2012Q3

REPORT INFORMATION
  Report Type: 
  Country: None (occurrence: None)
  Receive Date: 20120713
  Receipt Date: 20120702
  Transmission Date: 20120928
  Serious: Yes (Hospitalization)
  Sender: FDA-Public Use
  Company Number: US-BIOGENIDEC-2006BI014294

PATIENT
  Age: 54 Year
  Sex: Female
  Weight: 48 kg

DRUGS (14)
  1. AVONEX [Suspect]
     Indication: MULTIPLE SCLEROSIS
     Route: 030
     Dates: start: 19960101, end: 20030801
  2. LIORESAL [Concomitant]
     Indication: MUSCLE SPASMS
  3. VALIUM [Concomitant]
     Indication: MUSCLE SPASMS
  4. AVONEX [Suspect]
     Route: 030
     Dates: start: 20120601
  5. PREVACID [Concomitant]
     Indication: GASTROOESOPHAGEAL REFLUX DISEASE
  6. PERI-COLACE [Concomitant]
     Indication: CONSTIPATION
  7. DITROPAN [Concomitant]
     Indication: NEUROGENIC BLADDER
  8. PAMELOR [Concomitant]
     Indication: MIGRAINE
  9. CORGARD [Concomitant]
     Indication: MIGRAINE
  10. NORGESIC FORTE [Concomitant]
     Indication: HEADACHE
  11. IMITREX [Concomitant]
     Indication: MIGRAINE
  12. SYNTHROID [Concomitant]
     Indication: HYPOTHYROIDISM
  13. AVONEX [Suspect]
     Route: 030
     Dates: start: 20030801, end: 20120410
  14. AVONEX [Suspect]
     Route: 030
     Dates: start: 20120411, end: 20120601

REACTIONS (9)
  - FATIGUE [None]
  - BURNING SENSATION [None]
  - THROMBOSIS [None]
  - PAIN IN EXTREMITY [None]
  - MULTIPLE SCLEROSIS RELAPSE [None]
  - VISUAL FIELD DEFECT [None]
  - CELLULITIS STAPHYLOCOCCAL [None]
  - STAPHYLOCOCCAL ABSCESS [None]
  - EYE INFECTION [None]
